FAERS Safety Report 6508642-4 (Version None)
Quarter: 2009Q4

REPORT INFORMATION
  Report Type: 
  Country: None (occurrence: None)
  Receive Date: 20091221
  Receipt Date: 20091210
  Transmission Date: 20100525
  Serious: No
  Sender: FDA-Public Use
  Company Number: US-ELI_LILLY_AND_COMPANY-US200907002355

PATIENT
  Sex: Male

DRUGS (10)
  1. FORTEO [Suspect]
     Indication: OSTEOPOROSIS
     Dosage: 20 UG, DAILY (1/D)
     Dates: start: 20090219
  2. FORTEO [Suspect]
     Dosage: 20 UG, DAILY (1/D)
     Dates: start: 20090219
  3. PRILOSEC [Concomitant]
  4. BABY ASPIRIN [Concomitant]
  5. CALCIUM [Concomitant]
  6. VITAMIN D [Concomitant]
  7. RANITIDINE [Concomitant]
  8. LORAZEPAM [Concomitant]
  9. CLONAZEPAM [Concomitant]
  10. NITROGLYCERIN [Concomitant]

REACTIONS (5)
  - BONE PAIN [None]
  - COMPRESSION FRACTURE [None]
  - FALL [None]
  - GAIT DISTURBANCE [None]
  - JOINT SPRAIN [None]
